FAERS Safety Report 5478829-0 (Version None)
Quarter: 2007Q4

REPORT INFORMATION
  Report Type: 
  Country: None (occurrence: None)
  Receive Date: 20071002
  Receipt Date: 20070919
  Transmission Date: 20080405
  Serious: Yes (Hospitalization)
  Sender: FDA-Public Use
  Company Number: 236382K07USA

PATIENT
  Age: 30 Year
  Sex: Female

DRUGS (4)
  1. REBIF [Suspect]
     Indication: MULTIPLE SCLEROSIS
     Dosage: 44 MCG, 3 IN 1 WEEKS, SUBCUTANEOUS
     Route: 058
     Dates: start: 20060717
  2. WELLBUTRIN [Concomitant]
  3. AMITRIPTYLINE HCL [Concomitant]
  4. PERCOCET [Concomitant]

REACTIONS (4)
  - DEPRESSION [None]
  - FATIGUE [None]
  - KIDNEY INFECTION [None]
  - PAIN IN EXTREMITY [None]
